FAERS Safety Report 4468037-4 (Version None)
Quarter: 2004Q4

REPORT INFORMATION
  Report Type: 
  Country: None (occurrence: None)
  Receive Date: 20041004
  Receipt Date: 20041004
  Transmission Date: 20050328
  Serious: Yes (Other)
  Sender: FDA-Public Use
  Company Number: None

PATIENT
  Age: 82 Year
  Sex: Male
  Weight: 74.7 kg

DRUGS (17)
  1. GATIFLOXACIN [Suspect]
  2. PREDNISONE [Concomitant]
  3. TETRACYCLINE [Concomitant]
  4. ALBUTEROL [Concomitant]
  5. IPRATROPIUM BROMIDE [Concomitant]
  6. VITAMIN E [Concomitant]
  7. NITROGLYCERIN [Concomitant]
  8. MILK OF MAGNESIA TAB [Concomitant]
  9. BISCODYL SUPP [Concomitant]
  10. ALBUTEROL/IPRATROPIUM MDI [Concomitant]
  11. ACETAMINOPHEN [Concomitant]
  12. SIMVASTATIN [Concomitant]
  13. OMEPRAZOLE [Concomitant]
  14. ASPIRIN [Concomitant]
  15. TERAZOSIN HCL [Concomitant]
  16. METOPROLOL SUCCINATE [Concomitant]
  17. FUROSEMIDE [Concomitant]

REACTIONS (1)
  - CONFUSIONAL STATE [None]
